FAERS Safety Report 17708119 (Version 1)
Quarter: 2020Q2

REPORT INFORMATION
  Report Type: Report from Study
  Country: US (occurrence: US)
  Receive Date: 20200425
  Receipt Date: 20200425
  Transmission Date: 20200714
  Serious: No
  Sender: FDA-Public Use
  Company Number: NVSC2017US006948

PATIENT
  Sex: Female

DRUGS (6)
  1. KETOTIFEN [Suspect]
     Active Substance: KETOTIFEN
  2. KETOROLAC [Suspect]
     Active Substance: KETOROLAC TROMETHAMINE
  3. ZADITOR [Suspect]
     Active Substance: KETOTIFEN FUMARATE
  4. AZELASTINE. [Suspect]
     Active Substance: AZELASTINE HYDROCHLORIDE
  5. OLOPATADINE HYDROCHLORIDE. [Suspect]
     Active Substance: OLOPATADINE HYDROCHLORIDE
  6. PATANOL [Suspect]
     Active Substance: OLOPATADINE HYDROCHLORIDE

REACTIONS (1)
  - Treatment failure [Unknown]
